FAERS Safety Report 12682399 (Version 2)
Quarter: 2016Q4

REPORT INFORMATION
  Report Type: Spontaneous
  Country: FR (occurrence: FR)
  Receive Date: 20160825
  Receipt Date: 20161129
  Transmission Date: 20170207
  Serious: Yes (Hospitalization)
  Sender: FDA-Public Use
  Company Number: FR-ASTRAZENECA-2016SE88921

PATIENT
  Age: 31846 Day
  Sex: Female

DRUGS (1)
  1. ARIMIDEX [Suspect]
     Active Substance: ANASTROZOLE
     Indication: BREAST CANCER
     Route: 048
     Dates: start: 201607, end: 20160715

REACTIONS (7)
  - Mitral valve incompetence [None]
  - Blood pressure increased [Unknown]
  - Agitation [Unknown]
  - Atrial fibrillation [Unknown]
  - Ventricular extrasystoles [None]
  - Ischaemic stroke [Recovered/Resolved with Sequelae]
  - Stress [Unknown]

NARRATIVE: CASE EVENT DATE: 20160715
